FAERS Safety Report 7779588-9 (Version None)
Quarter: 2011Q3

REPORT INFORMATION
  Report Type: 
  Country: None (occurrence: None)
  Receive Date: 20110927
  Receipt Date: 20110915
  Transmission Date: 20111222
  Serious: Yes (Other)
  Sender: FDA-Public Use
  Company Number: HK-BAYER-2011-086118

PATIENT
  Sex: Female

DRUGS (1)
  1. YAZ [Suspect]
     Indication: CONTRACEPTION
     Dosage: UNK UNK, QD
     Route: 048
     Dates: start: 20110901, end: 20110914

REACTIONS (2)
  - ANTEPARTUM HAEMORRHAGE [None]
  - MATERNAL EXPOSURE DURING PREGNANCY [None]
